FAERS Safety Report 10227271 (Version 1)
Quarter: 2014Q2

REPORT INFORMATION
  Report Type: Spontaneous
  Country: IN (occurrence: IN)
  Receive Date: 20140610
  Receipt Date: 20140610
  Transmission Date: 20141212
  Serious: Yes (Other)
  Sender: FDA-Public Use
  Company Number: IN-MYLANLABS-2014S1012626

PATIENT
  Age: 3 Year
  Sex: Female
  Weight: 12 kg

DRUGS (1)
  1. PHENYTOIN [Suspect]
     Indication: HEAD INJURY
     Route: 042

REACTIONS (3)
  - Compartment syndrome [Recovering/Resolving]
  - Soft tissue necrosis [Recovering/Resolving]
  - Injection site extravasation [Recovering/Resolving]
